FAERS Safety Report 6490765-X (Version None)
Quarter: 2009Q4

REPORT INFORMATION
  Report Type: 
  Country: None (occurrence: None)
  Receive Date: 20091124
  Receipt Date: 20090430
  Transmission Date: 20100525
  Serious: Yes (Death)
  Sender: FDA-Public Use
  Company Number: 282295

PATIENT
  Sex: Female

DRUGS (1)
  1. HERCEPTIN (TRASTUZUMAB) POWDER AND SOLVENT  SOLUTION FOR INFUSION, 440 [Suspect]
     Indication: BREAST CANCER METASTATIC

REACTIONS (1)
  - BREAST CANCER METASTATIC [None]
